FAERS Safety Report 7656607-1 (Version None)
Quarter: 2011Q3

REPORT INFORMATION
  Report Type: 
  Country: None (occurrence: None)
  Receive Date: 20110804
  Receipt Date: 20110722
  Transmission Date: 20111222
  Serious: Yes (Death, Other)
  Sender: FDA-Public Use
  Company Number: US-SANOFI-AVENTIS-2011SA048587

PATIENT
  Age: 70 Year
  Sex: Female
  Weight: 97 kg

DRUGS (12)
  1. SIMVASTATIN [Concomitant]
  2. LEVOTHYROXINE SODIUM [Concomitant]
  3. POTASSIUM CHLORIDE [Concomitant]
  4. FUROSEMIDE [Concomitant]
  5. DABIGATRAN [Concomitant]
  6. ACYCLOVIR [Concomitant]
  7. APAP TAB [Concomitant]
  8. GABAPENTIN [Concomitant]
  9. DRONEDARONE HCL [Suspect]
     Indication: ATRIAL FIBRILLATION
     Route: 048
     Dates: start: 20110621, end: 20110707
  10. ASPIRIN [Concomitant]
  11. CODEINE SULFATE [Concomitant]
  12. VITAMIN D [Concomitant]

REACTIONS (2)
  - AORTIC ANEURYSM RUPTURE [None]
  - CARDIAC FAILURE [None]
